FAERS Safety Report 17665182 (Version 1)
Quarter: 2020Q2

REPORT INFORMATION
  Report Type: Spontaneous
  Country: US (occurrence: US)
  Receive Date: 20200413
  Receipt Date: 20200413
  Transmission Date: 20200713
  Serious: Yes (Disabling, Other)
  Sender: FDA-Public Use
  Company Number: None

PATIENT
  Age: 59 Year
  Sex: Male

DRUGS (10)
  1. ARIPIPRAZOLE 10MG [Concomitant]
     Active Substance: ARIPIPRAZOLE
  2. PRIMIDONE 50MG [Concomitant]
     Active Substance: PRIMIDONE
  3. SYMPICORT 160/4.5 [Concomitant]
  4. METOPROLOL ER 25MG [Concomitant]
  5. AUSTEDO [Suspect]
     Active Substance: DEUTETRABENAZINE
     Route: 048
  6. HYDROCHOLOTHIAZIDE 25MG [Concomitant]
  7. PAROXETINE. [Concomitant]
     Active Substance: PAROXETINE
  8. ZETIA [Concomitant]
     Active Substance: EZETIMIBE
  9. LISINOPRIL. [Concomitant]
     Active Substance: LISINOPRIL
  10. SUBOXONE SL 8-2MG [Concomitant]

REACTIONS (2)
  - Drug intolerance [None]
  - Sedation [None]

NARRATIVE: CASE EVENT DATE: 20200413
